FAERS Safety Report 15981070 (Version 1)
Quarter: 2019Q1

REPORT INFORMATION
  Report Type: Spontaneous
  Country: US (occurrence: US)
  Receive Date: 20190219
  Receipt Date: 20190219
  Transmission Date: 20190418
  Serious: No
  Sender: FDA-Public Use
  Company Number: US-ENDO PHARMACEUTICALS INC-2018-024219

PATIENT
  Age: 75 Year
  Sex: Male
  Weight: 97.51 kg

DRUGS (1)
  1. XIAFLEX [Suspect]
     Active Substance: COLLAGENASE CLOSTRIDIUM HISTOLYTICUM
     Indication: DUPUYTREN^S CONTRACTURE
     Dosage: 3 INJECTIONS INTO 4TH FINGER + 1 INJECTION INTO 5TH FINGER
     Route: 026
     Dates: start: 201707, end: 201707

REACTIONS (7)
  - Injection site discomfort [Unknown]
  - Musculoskeletal pain [Not Recovered/Not Resolved]
  - Injection site pain [Unknown]
  - Muscular weakness [Unknown]
  - Neuromuscular pain [Unknown]
  - Pain in extremity [Not Recovered/Not Resolved]
  - Musculoskeletal discomfort [Not Recovered/Not Resolved]

NARRATIVE: CASE EVENT DATE: 201707
